FAERS Safety Report 7603841-2 (Version None)
Quarter: 2011Q3

REPORT INFORMATION
  Report Type: 
  Country: None (occurrence: None)
  Receive Date: 20110712
  Receipt Date: 20110603
  Transmission Date: 20111222
  Serious: Yes (Life-Threatening, Hospitalization)
  Sender: FDA-Public Use
  Company Number: US-GLAXOSMITHKLINE-Z0009864A

PATIENT
  Age: 43 Year
  Sex: Male
  Weight: 105.3 kg

DRUGS (3)
  1. COREG [Suspect]
     Route: 048
  2. LITHIUM [Suspect]
     Route: 048
  3. BLINDED TRIAL MEDICATION [Suspect]
     Indication: ACUTE CORONARY SYNDROME
     Route: 048
     Dates: start: 20110307

REACTIONS (8)
  - RENAL FAILURE ACUTE [None]
  - HYPOTENSION [None]
  - SUICIDE ATTEMPT [None]
  - ANTIPSYCHOTIC DRUG LEVEL INCREASED [None]
  - ANGER [None]
  - DIALYSIS [None]
  - AGITATION [None]
  - BRADYCARDIA [None]
